APPROVED DRUG PRODUCT: FELBAMATE
Active Ingredient: FELBAMATE
Strength: 600MG
Dosage Form/Route: TABLET;ORAL
Application: A204595 | Product #002
Applicant: ALVOGEN INC
Approved: Jan 11, 2016 | RLD: No | RS: No | Type: DISCN